FAERS Safety Report 5725423-X (Version None)
Quarter: 2008Q2

REPORT INFORMATION
  Report Type: 
  Country: None (occurrence: None)
  Receive Date: 20080501
  Receipt Date: 20080419
  Transmission Date: 20081010
  Serious: Yes (Other)
  Sender: FDA-Public Use
  Company Number: US-PFIZER INC-2008035496

PATIENT
  Sex: Female
  Weight: 66 kg

DRUGS (4)
  1. CHANTIX [Suspect]
     Indication: SMOKING CESSATION THERAPY
  2. CALCIUM WITH VITAMIN D [Concomitant]
  3. LIPITOR [Concomitant]
     Indication: BLOOD CHOLESTEROL
  4. LUNESTA [Concomitant]
     Indication: SLEEP DISORDER

REACTIONS (6)
  - ABASIA [None]
  - ERYTHEMA [None]
  - JOINT SWELLING [None]
  - OEDEMA PERIPHERAL [None]
  - PAIN IN EXTREMITY [None]
  - RASH [None]
